FAERS Safety Report 15505166 (Version 3)
Quarter: 2018Q4

REPORT INFORMATION
  Report Type: Spontaneous
  Country: CA (occurrence: CA)
  Receive Date: 20181016
  Receipt Date: 20181122
  Transmission Date: 20190205
  Serious: Yes (Other)
  Sender: FDA-Public Use
  Company Number: CA-ROCHE-2197046

PATIENT
  Age: 65 Year
  Sex: Female

DRUGS (24)
  1. XOLAIR [Suspect]
     Active Substance: OMALIZUMAB
     Route: 058
     Dates: start: 20170703
  2. ASAPHEN [Concomitant]
     Active Substance: ASPIRIN
     Indication: PRODUCT USED FOR UNKNOWN INDICATION
     Route: 065
  3. AZITHROMYCIN ANHYDROUS. [Concomitant]
     Active Substance: AZITHROMYCIN ANHYDROUS
     Dosage: FOR FIVE DAYS
     Route: 065
  4. XOLAIR [Suspect]
     Active Substance: OMALIZUMAB
     Route: 058
     Dates: start: 20180807
  5. AVAMYS [Concomitant]
     Active Substance: FLUTICASONE FUROATE
     Indication: PRODUCT USED FOR UNKNOWN INDICATION
     Route: 065
  6. XOLAIR [Suspect]
     Active Substance: OMALIZUMAB
     Route: 058
     Dates: start: 20170508
  7. PANTOLOC [Concomitant]
     Active Substance: PANTOPRAZOLE SODIUM
     Indication: PRODUCT USED FOR UNKNOWN INDICATION
     Route: 065
  8. VENTOLIN [Concomitant]
     Active Substance: ALBUTEROL SULFATE
     Indication: PRODUCT USED FOR UNKNOWN INDICATION
     Route: 065
  9. SINGULAIR [Concomitant]
     Active Substance: MONTELUKAST SODIUM
     Indication: PRODUCT USED FOR UNKNOWN INDICATION
     Route: 065
  10. PREDNISONE. [Concomitant]
     Active Substance: PREDNISONE
     Route: 065
  11. XOLAIR [Suspect]
     Active Substance: OMALIZUMAB
     Indication: ASTHMA
     Route: 058
     Dates: start: 20160504
  12. XOLAIR [Suspect]
     Active Substance: OMALIZUMAB
     Route: 058
     Dates: start: 20170202
  13. XOLAIR [Suspect]
     Active Substance: OMALIZUMAB
     Route: 058
     Dates: start: 20171023
  14. BETAHISTINE [Concomitant]
     Active Substance: BETAHISTINE
     Route: 065
  15. GRAVOL [Concomitant]
     Active Substance: DIMENHYDRINATE
  16. PRO AMOX [Concomitant]
     Route: 065
     Dates: start: 20170706
  17. METFORMIN [Suspect]
     Active Substance: METFORMIN HYDROCHLORIDE
     Indication: PRODUCT USED FOR UNKNOWN INDICATION
     Route: 065
     Dates: start: 20160504
  18. SYMBICORT [Concomitant]
     Active Substance: BUDESONIDE\FORMOTEROL FUMARATE DIHYDRATE
     Indication: PRODUCT USED FOR UNKNOWN INDICATION
     Route: 065
  19. FUROSEMIDE. [Concomitant]
     Active Substance: FUROSEMIDE
     Indication: PRODUCT USED FOR UNKNOWN INDICATION
     Route: 065
  20. LIPITOR [Concomitant]
     Active Substance: ATORVASTATIN CALCIUM
     Indication: PRODUCT USED FOR UNKNOWN INDICATION
     Route: 065
  21. COVERSYL [Concomitant]
     Active Substance: PERINDOPRIL
     Indication: PRODUCT USED FOR UNKNOWN INDICATION
     Route: 065
  22. XOLAIR [Suspect]
     Active Substance: OMALIZUMAB
     Route: 058
     Dates: start: 20160919
  23. XOLAIR [Suspect]
     Active Substance: OMALIZUMAB
     Route: 058
     Dates: start: 20161221
  24. XOLAIR [Suspect]
     Active Substance: OMALIZUMAB
     Route: 058
     Dates: start: 20170410

REACTIONS (38)
  - Sensitivity to weather change [Unknown]
  - Feeling abnormal [Unknown]
  - Irritability [Unknown]
  - Sense of oppression [Unknown]
  - Sinusitis [Unknown]
  - Dizziness [Not Recovered/Not Resolved]
  - Balance disorder [Unknown]
  - Sputum discoloured [Unknown]
  - Feeling hot [Unknown]
  - Lung infection [Recovered/Resolved]
  - Meniere^s disease [Unknown]
  - Tinnitus [Unknown]
  - Respiratory fume inhalation disorder [Unknown]
  - Influenza [Unknown]
  - Anaemia [Unknown]
  - Dyspepsia [Unknown]
  - Malaise [Unknown]
  - Visual impairment [Unknown]
  - Tumour compression [Unknown]
  - Bronchitis [Unknown]
  - Headache [Unknown]
  - Fatigue [Unknown]
  - Joint swelling [Unknown]
  - Body temperature decreased [Unknown]
  - Paraesthesia oral [Recovered/Resolved]
  - Vertigo [Unknown]
  - Ear discomfort [Unknown]
  - Deafness transitory [Unknown]
  - Peripheral swelling [Unknown]
  - Arthralgia [Unknown]
  - Cough [Unknown]
  - Hyperhidrosis [Unknown]
  - Paraesthesia [Recovered/Resolved]
  - Oliguria [Unknown]
  - Oropharyngeal pain [Unknown]
  - Frustration tolerance decreased [Unknown]
  - Pain [Unknown]
  - Viral infection [Unknown]

NARRATIVE: CASE EVENT DATE: 20160504
